FAERS Safety Report 25263023 (Version 1)
Quarter: 2025Q2

REPORT INFORMATION
  Report Type: Spontaneous
  Country: CN (occurrence: CN)
  Receive Date: 20250502
  Receipt Date: 20250502
  Transmission Date: 20250717
  Serious: Yes (Hospitalization, Other)
  Sender: CATALYST PHARMA
  Company Number: CN-CATALYSTPHARMACEUTICALPARTNERS-CN-CATA-25-00612

PATIENT
  Sex: Male

DRUGS (5)
  1. PERAMPANEL [Suspect]
     Active Substance: PERAMPANEL
     Indication: Epilepsy
     Dosage: (8 MILLIGRAM(S)) QN
     Route: 048
     Dates: start: 20230601, end: 20250305
  2. PERAMPANEL [Suspect]
     Active Substance: PERAMPANEL
     Dosage: (7 MILLIGRAM(S)) QD
     Route: 048
     Dates: start: 20250306, end: 20250404
  3. PERAMPANEL [Suspect]
     Active Substance: PERAMPANEL
     Dosage: (6 MILLIGRAM(S)) QN
     Route: 048
     Dates: start: 20250405, end: 202504
  4. PERAMPANEL [Suspect]
     Active Substance: PERAMPANEL
     Route: 048
     Dates: start: 20250409
  5. LEVETIRACETAM [Suspect]
     Active Substance: LEVETIRACETAM
     Indication: Epilepsy
     Dosage: 0.5 GM IN THE MORNING AND 0.75 IN THE EVENING
     Route: 065
     Dates: start: 20220910

REACTIONS (10)
  - Hyporesponsive to stimuli [Unknown]
  - Poor quality sleep [Unknown]
  - Sleep talking [Unknown]
  - Soliloquy [Recovering/Resolving]
  - Inappropriate affect [Recovered/Resolved]
  - Seizure [Recovered/Resolved]
  - Hallucination, visual [Recovering/Resolving]
  - Hallucination, auditory [Recovering/Resolving]
  - Persecutory delusion [Unknown]
  - Affect lability [Unknown]

NARRATIVE: CASE EVENT DATE: 20250101
